FAERS Safety Report 6202258-5 (Version None)
Quarter: 2009Q2

REPORT INFORMATION
  Report Type: 
  Country: None (occurrence: None)
  Receive Date: 20090526
  Receipt Date: 20090518
  Transmission Date: 20091009
  Serious: Yes (Other)
  Sender: FDA-Public Use
  Company Number: US-AVENTIS-200914308US

PATIENT
  Age: 63 Year
  Sex: Female

DRUGS (4)
  1. LANTUS [Suspect]
     Dosage: DOSE: 25-35 UNITS
     Route: 058
     Dates: start: 20040101
  2. OPTICLIK (INSULIN INJECTION PEN) [Suspect]
     Dates: start: 20040101
  3. NORVASC [Concomitant]
     Dosage: DOSE: 1 TAB
  4. SINGULAIR [Concomitant]
     Dosage: DOSE: 1 TAB

REACTIONS (1)
  - RETINOPATHY [None]
